FAERS Safety Report 8089938-4 (Version None)
Quarter: 2012Q1

REPORT INFORMATION
  Report Type: 
  Country: None (occurrence: None)
  Receive Date: 20120129
  Receipt Date: 20111021
  Transmission Date: 20120608
  Serious: No
  Sender: FDA-Public Use
  Company Number: US-ABBOTT-11P-163-0867368-00

PATIENT
  Age: 53 Year
  Sex: Female

DRUGS (2)
  1. HUMIRA [Suspect]
     Indication: RHEUMATOID ARTHRITIS
     Dates: start: 20111001
  2. AMLODIPINE BESYLATE AND BENAZEPRIL HCL [Concomitant]
     Indication: HYPERTENSION
     Dosage: 5-20 MG DAILY
     Route: 048

REACTIONS (8)
  - CHEST DISCOMFORT [None]
  - CRYING [None]
  - INTRANASAL HYPOAESTHESIA [None]
  - FATIGUE [None]
  - ABDOMINAL PAIN [None]
  - VISION BLURRED [None]
  - BODY TEMPERATURE [None]
  - HYPOAESTHESIA [None]
